FAERS Safety Report 8274030-6 (Version None)
Quarter: 2012Q2

REPORT INFORMATION
  Report Type: 
  Country: None (occurrence: None)
  Receive Date: 20120411
  Receipt Date: 20120406
  Transmission Date: 20120825
  Serious: Yes (Hospitalization, Other)
  Sender: FDA-Public Use
  Company Number: PHEH2012US007539

PATIENT
  Sex: Female

DRUGS (24)
  1. LIPITOR [Concomitant]
     Dosage: UNK UKN, UNK
  2. VITAMINS NOS [Concomitant]
     Dosage: UNK UKN, UNK
  3. GAS RELIEF [Concomitant]
     Dosage: UNK UKN, UNK
  4. DIOVAN [Suspect]
     Dosage: 320 MG, UNK
  5. NASONEX [Concomitant]
     Dosage: UNK UKN, UNK
  6. VITAMIN B-12 [Concomitant]
     Dosage: UNK UKN, UNK
  7. AMLODIPINE [Concomitant]
     Dosage: UNK UKN, UNK
  8. PROAIR (FLUTICASONE PROPIONATE) [Concomitant]
     Dosage: UNK UKN, UNK
  9. ASCORBIC ACID [Concomitant]
     Dosage: UNK UKN, UNK
  10. ZYRTEC [Concomitant]
     Dosage: UNK UKN, UNK
  11. TRAMADOL HCL [Concomitant]
     Dosage: UNK UKN, UNK
  12. NEURONTIN [Concomitant]
     Dosage: UNK UKN, UNK
  13. ALBUTEROL [Concomitant]
     Dosage: UNK UKN, UNK
  14. PROVERA [Concomitant]
     Dosage: UNK UKN, UNK
  15. NASAL SALINE [Concomitant]
     Dosage: UNK UKN, UNK
  16. ANTIACID [Concomitant]
     Dosage: UNK UKN, UNK
  17. CYMBALTA [Concomitant]
     Dosage: UNK UKN, UNK
  18. PREVACID [Concomitant]
     Dosage: UNK UKN, UNK
  19. ADVAIR DISKUS 100/50 [Concomitant]
     Dosage: UNK UKN, UNK
  20. SUDAFED 12 HOUR [Concomitant]
     Dosage: UNK UKN, UNK
  21. FISH OIL [Concomitant]
     Dosage: UNK UKN, UNK
  22. AMARYL [Concomitant]
     Dosage: UNK UKN, UNK
  23. MIRALAX [Concomitant]
     Dosage: UNK UKN, UNK
  24. LEVOTHYROXINE SODIUM [Concomitant]
     Dosage: UNK UKN, UNK

REACTIONS (2)
  - ASTHMA [None]
  - PNEUMONIA [None]
